FAERS Safety Report 7200908-8 (Version None)
Quarter: 2010Q4

REPORT INFORMATION
  Report Type: 
  Country: None (occurrence: None)
  Receive Date: 20101228
  Receipt Date: 20091207
  Transmission Date: 20110411
  Serious: Yes (Other)
  Sender: FDA-Public Use
  Company Number: US-AMGEN-US378823

PATIENT

DRUGS (1)
  1. ENBREL [Suspect]

REACTIONS (2)
  - INFLUENZA [None]
  - PNEUMONIA [None]
